FAERS Safety Report 6369302-6 (Version None)
Quarter: 2009Q3

REPORT INFORMATION
  Report Type: 
  Country: None (occurrence: None)
  Receive Date: 20090916
  Receipt Date: 20090909
  Transmission Date: 20100115
  Serious: Yes (Hospitalization)
  Sender: FDA-Public Use
  Company Number: 2009SP022194

PATIENT
  Age: 34 Year
  Sex: Female

DRUGS (3)
  1. CHORIONIC GONADOTROPIN [Suspect]
     Indication: ARTIFICIAL INSEMINATION BY PARTNER
     Dosage: 5000 IU; IM
     Route: 030
     Dates: start: 20090101, end: 20090101
  2. CLOMIFENE (CLOMIFENE) [Suspect]
     Indication: ARTIFICIAL INSEMINATION BY PARTNER
     Dosage: 100 MG; PO
     Route: 048
     Dates: start: 20090101, end: 20090101
  3. HUMAN MENOPAUSAL GONADOTROPHIN (GONADOTROPINS) [Suspect]
     Indication: ARTIFICIAL INSEMINATION BY PARTNER
     Dosage: 150 IU; IM
     Route: 030
     Dates: start: 20090101, end: 20090101

REACTIONS (11)
  - ANAEMIA [None]
  - ASCITES [None]
  - DRUG EXPOSURE BEFORE PREGNANCY [None]
  - ECTOPIC PREGNANCY [None]
  - HAEMOGLOBIN INCREASED [None]
  - INTRA-ABDOMINAL HAEMORRHAGE [None]
  - MULTIPLE PREGNANCY [None]
  - OVARIAN HYPERSTIMULATION SYNDROME [None]
  - PLATELET COUNT DECREASED [None]
  - PLEURAL EFFUSION [None]
  - WHITE BLOOD CELL COUNT INCREASED [None]
